FAERS Safety Report 4307688-4 (Version None)
Quarter: 2004Q1

REPORT INFORMATION
  Report Type: 
  Country: None (occurrence: None)
  Receive Date: 20040226
  Receipt Date: 20040218
  Transmission Date: 20041129
  Serious: Yes (Death)
  Sender: FDA-Public Use
  Company Number: USA-2003-0011089

PATIENT
  Age: 42 Year
  Sex: Female
  Weight: 66.2 kg

DRUGS (4)
  1. OXYCONTIN [Suspect]
     Indication: PAIN
  2. ALPRAZOLAM [Suspect]
  3. DIPHENHYDRAMINE HCL [Suspect]
  4. CAFFEINE (CAFFEINE) [Suspect]

REACTIONS (4)
  - ASPHYXIA [None]
  - COMPLETED SUICIDE [None]
  - DRUG TOXICITY [None]
  - INJURY ASPHYXIATION [None]
